FAERS Safety Report 7130897-6 (Version None)
Quarter: 2010Q4

REPORT INFORMATION
  Report Type: 
  Country: None (occurrence: None)
  Receive Date: 20101201
  Receipt Date: 20101124
  Transmission Date: 20110411
  Serious: Yes (Hospitalization)
  Sender: FDA-Public Use
  Company Number: B0683378A

PATIENT
  Age: 3 Year
  Sex: Female

DRUGS (1)
  1. NIQUITIN MINI LOZENGES [Suspect]
     Indication: SMOKING CESSATION THERAPY
     Dosage: 5LOZ PER DAY
     Route: 048

REACTIONS (5)
  - ACCIDENTAL DRUG INTAKE BY CHILD [None]
  - ACCIDENTAL EXPOSURE [None]
  - COLD SWEAT [None]
  - LOSS OF CONSCIOUSNESS [None]
  - MALAISE [None]
